FAERS Safety Report 10706404 (Version 1)
Quarter: 2015Q1

REPORT INFORMATION
  Report Type: Spontaneous
  Country: US (occurrence: None)
  Receive Date: 20150109
  Receipt Date: 20150109
  Transmission Date: 20150721
  Serious: No
  Sender: FDA-Public Use
  Company Number: None

PATIENT
  Age: 39 Year
  Sex: Female
  Weight: 65.77 kg

DRUGS (1)
  1. NORTRIPTYLINE [Suspect]
     Active Substance: NORTRIPTYLINE
     Indication: GASTRITIS
     Dosage: 10 MG ONCE AT NIGHT, ONCE DAILY, TAKEN BY MOUTH
     Route: 048
     Dates: start: 20141216, end: 20150107

REACTIONS (6)
  - Gastrooesophageal reflux disease [None]
  - Abdominal distension [None]
  - Migraine [None]
  - Nausea [None]
  - Drug interaction [None]
  - Condition aggravated [None]

NARRATIVE: CASE EVENT DATE: 20150108
